FAERS Safety Report 9067620 (Version 2)
Quarter: 2014Q2

REPORT INFORMATION
  Report Type: Report from Study
  Country: US (occurrence: US)
  Receive Date: 20130128
  Receipt Date: 20140627
  Transmission Date: 20141212
  Serious: Yes (Other)
  Sender: FDA-Public Use
  Company Number: US-ROCHE-1184349

PATIENT
  Age: 57 Year
  Sex: Male

DRUGS (3)
  1. RITUXIMAB [Suspect]
     Indication: B-CELL LYMPHOMA
     Route: 042
  2. BENDAMUSTINE [Suspect]
     Indication: B-CELL LYMPHOMA
     Route: 042
  3. TRU-016 (ANTI-CD37 MAB) [Suspect]
     Indication: B-CELL LYMPHOMA
     Route: 042

REACTIONS (1)
  - Myelodysplastic syndrome [Unknown]
